FAERS Safety Report 10995818 (Version 1)
Quarter: 2015Q2

REPORT INFORMATION
  Report Type: Spontaneous
  Country: US (occurrence: US)
  Receive Date: 20150407
  Receipt Date: 20150407
  Transmission Date: 20150821
  Serious: No
  Sender: FDA-Public Use
  Company Number: US-LUNDBECK-DKLU1110003

PATIENT
  Age: 65 Year
  Sex: Male

DRUGS (4)
  1. NORTHERA [Suspect]
     Active Substance: DROXIDOPA
     Route: 065
  2. NORTHERA [Suspect]
     Active Substance: DROXIDOPA
     Route: 065
  3. NORTHERA [Suspect]
     Active Substance: DROXIDOPA
     Indication: AUTONOMIC FAILURE SYNDROME
     Route: 065
     Dates: start: 20150216
  4. NORTHERA [Suspect]
     Active Substance: DROXIDOPA
     Route: 065

REACTIONS (4)
  - Heart rate increased [Unknown]
  - Blood pressure increased [Unknown]
  - Headache [Unknown]
  - Malaise [Unknown]

NARRATIVE: CASE EVENT DATE: 20150308
